FAERS Safety Report 5020980-3 (Version None)
Quarter: 2006Q2

REPORT INFORMATION
  Report Type: 
  Country: None (occurrence: None)
  Receive Date: 20060608
  Receipt Date: 20060531
  Transmission Date: 20061013
  Serious: Yes (Other)
  Sender: FDA-Public Use
  Company Number: PHEH2006US07122

PATIENT
  Age: 86 Year
  Sex: Female

DRUGS (5)
  1. DIOVAN [Suspect]
     Indication: HYPERTENSION
  2. DILTIAZEM [Suspect]
     Indication: HYPERTENSION
     Dosage: 90 MG, BID
     Route: 048
  3. COZAAR [Suspect]
  4. PREDNISONE [Concomitant]
     Indication: ADRENAL DISORDER
     Dosage: 15 MG, QD
     Route: 048
     Dates: start: 20000101
  5. ASPIRIN [Concomitant]
     Dosage: 81 MG, QD
     Route: 048

REACTIONS (4)
  - ASTHENIA [None]
  - COUGH [None]
  - DIZZINESS [None]
  - STENT PLACEMENT [None]
